FAERS Safety Report 19583624 (Version 6)
Quarter: 2021Q3

REPORT INFORMATION
  Report Type: Report from Study
  Country: CN (occurrence: CN)
  Receive Date: 20210720
  Receipt Date: 20210906
  Transmission Date: 20211014
  Serious: Yes (Hospitalization)
  Sender: FDA-Public Use
  Company Number: CN-ROCHE-2869703

PATIENT
  Age: 67 Year
  Sex: Male
  Weight: 59 kg

DRUGS (36)
  1. GLUCOSE + SODIUM CHLORIDE [Concomitant]
     Active Substance: DEXTROSE\SODIUM CHLORIDE
     Dates: start: 20210628
  2. LIDOCAINE HYDROCHLORIDE. [Concomitant]
     Active Substance: LIDOCAINE HYDROCHLORIDE
     Dates: start: 20210628, end: 20210628
  3. WARFARIN SODIUM. [Concomitant]
     Active Substance: WARFARIN SODIUM
     Dates: start: 202106
  4. METOPROLOL SUCCINATE. [Concomitant]
     Active Substance: METOPROLOL SUCCINATE
     Indication: RHEUMATIC HEART DISEASE
  5. DEXAMETHASONE SODIUM PHOSPHATE. [Concomitant]
     Active Substance: DEXAMETHASONE SODIUM PHOSPHATE
     Route: 042
     Dates: start: 20210629, end: 20210630
  6. EBASTINE [Concomitant]
     Active Substance: EBASTINE
     Indication: DERMATITIS
     Route: 048
     Dates: start: 20210713
  7. OMEPRAZOLE SODIUM [Concomitant]
     Active Substance: OMEPRAZOLE SODIUM
     Dates: start: 20210710, end: 20210710
  8. SODIUM POTASSIUM MAGNESIUM CALCIUM AND GLUCOSE [Concomitant]
     Dates: start: 20210711, end: 20210711
  9. ATEZOLIZUMAB. [Suspect]
     Active Substance: ATEZOLIZUMAB
     Indication: OESOPHAGEAL SQUAMOUS CELL CARCINOMA
     Dosage: ON 28/JUN/2021, HE RECEIVED MOST RECENT DOSE OF BLINDED ATEZOLIZUMAB PRIOR TO ONSET OF AE/SAE
     Route: 042
     Dates: start: 20210628
  10. PACLITAXEL. [Suspect]
     Active Substance: PACLITAXEL
     Indication: OESOPHAGEAL SQUAMOUS CELL CARCINOMA
     Dosage: ON 28/JUN/2021, HE RECEIVED MOST RECENT DOSE OF PACLITAXEL (295.8 MG) PRIOR TO ONSET OF AE/SAE.
     Route: 042
     Dates: start: 20210628
  11. GLUCOSE [Concomitant]
     Active Substance: DEXTROSE
     Dates: start: 20210711, end: 20210711
  12. MOXIFLOXACIN HYDROCHLORIDE AND SODIUM CHLORIDE [Concomitant]
     Active Substance: MOXIFLOXACIN HYDROCHLORIDE
     Indication: URINARY TRACT INFECTION
     Route: 042
     Dates: start: 20210710, end: 20210717
  13. TIRAGOLUMAB. [Suspect]
     Active Substance: TIRAGOLUMAB
     Indication: OESOPHAGEAL SQUAMOUS CELL CARCINOMA
     Dosage: ON 28/JUN/2021, HE RECEIVED MOST RECENT DOSE OF BLINDED TIRAGOLUMAB PRIOR TO ONSET OF AE/SAE
     Route: 042
     Dates: start: 20210628
  14. POTASSIUM CHLORIDE. [Concomitant]
     Active Substance: POTASSIUM CHLORIDE
     Dates: start: 20210710, end: 20210710
  15. COMPOUND AMINO ACID INJECTION (18AA?II) [Concomitant]
     Active Substance: AMINO ACIDS, SOURCE UNSPECIFIED
     Dates: start: 20210710, end: 20210710
  16. CISPLATIN. [Suspect]
     Active Substance: CISPLATIN
     Indication: OESOPHAGEAL SQUAMOUS CELL CARCINOMA
     Dosage: ON 28/JUN/2021, HE RECEIVED MOST RECENT DOSE OF CISPLATIN (101.4 MG) PRIOR TO ONSET OF AE/SAE.
     Route: 042
     Dates: start: 20210628
  17. POTASSIUM CHLORIDE. [Concomitant]
     Active Substance: POTASSIUM CHLORIDE
     Dates: start: 20210711, end: 20210711
  18. APREPITANT. [Concomitant]
     Active Substance: APREPITANT
     Dates: start: 20210628, end: 20210628
  19. DEXAMETHASONE SODIUM PHOSPHATE. [Concomitant]
     Active Substance: DEXAMETHASONE SODIUM PHOSPHATE
     Route: 042
     Dates: start: 20210628, end: 20210628
  20. DIGOXIN. [Concomitant]
     Active Substance: DIGOXIN
     Indication: RHEUMATIC HEART DISEASE
  21. SODIUM POTASSIUM MAGNESIUM CALCIUM AND GLUCOSE [Concomitant]
     Dates: start: 20210710, end: 20210710
  22. POTASSIUM CHLORIDE. [Concomitant]
     Active Substance: POTASSIUM CHLORIDE
     Dates: start: 20210628
  23. VITAMIN B6 [Concomitant]
     Active Substance: PYRIDOXINE HYDROCHLORIDE
     Dates: start: 20210628, end: 20210630
  24. ONDANSETRON HYDROCHLORIDE. [Concomitant]
     Active Substance: ONDANSETRON HYDROCHLORIDE
     Dates: start: 20210628, end: 20210630
  25. COMPOUND GLYCYRRHIZIN TABLETS [Concomitant]
     Active Substance: GLYCYRRHIZIN
     Indication: DERMATITIS
     Route: 048
     Dates: start: 20210713
  26. PROMETHAZINE HYDROCHLORIDE. [Concomitant]
     Active Substance: PROMETHAZINE HYDROCHLORIDE
     Dates: start: 20210628, end: 20210628
  27. SODIUM RABEPRAZOLE [Concomitant]
     Active Substance: RABEPRAZOLE SODIUM
     Dates: start: 20210701, end: 20210703
  28. COMPOUND SODIUM CHLORIDE INJECTION [Concomitant]
     Active Substance: SODIUM CHLORIDE
     Dates: start: 20210629, end: 20210629
  29. LIDOCAINE HYDROCHLORIDE. [Concomitant]
     Active Substance: LIDOCAINE HYDROCHLORIDE
     Dates: start: 20210628, end: 20210628
  30. RECOMBINANT HUMAN INTERLEUKIN?11 [Concomitant]
     Active Substance: OPRELVEKIN
     Indication: THROMBOCYTOPENIA
     Dates: start: 20210712, end: 20210715
  31. APREPITANT. [Concomitant]
     Active Substance: APREPITANT
     Dates: start: 20210629, end: 20210630
  32. SODIUM CHLORIDE. [Concomitant]
     Active Substance: SODIUM CHLORIDE
     Indication: HYPONATRAEMIA
     Dates: start: 20210710, end: 20210710
  33. METOCLOPRAMIDE HYDROCHLORIDE. [Concomitant]
     Active Substance: METOCLOPRAMIDE HYDROCHLORIDE
     Dates: start: 20210628, end: 20210630
  34. GLUCOSE [Concomitant]
     Active Substance: DEXTROSE
     Dates: start: 20210710, end: 20210710
  35. ETIMICIN SULFATE;SODIUM CHLORIDE [Concomitant]
     Indication: URINARY TRACT INFECTION
     Route: 042
     Dates: start: 20210710, end: 20210717
  36. COMPOUND BETAMETHASONE [Concomitant]
     Indication: DERMATITIS
     Route: 030
     Dates: start: 20210713, end: 20210713

REACTIONS (1)
  - Febrile neutropenia [Recovered/Resolved]

NARRATIVE: CASE EVENT DATE: 20210709
